FAERS Safety Report 19750492 (Version 1)
Quarter: 2021Q3

REPORT INFORMATION
  Report Type: Spontaneous
  Country: DE (occurrence: DE)
  Receive Date: 20210826
  Receipt Date: 20210826
  Transmission Date: 20211014
  Serious: Yes (Other)
  Sender: FDA-Public Use
  Company Number: NVSC2021DE186788

PATIENT
  Age: 8 Year
  Sex: Female

DRUGS (1)
  1. TRAMETINIB [Suspect]
     Active Substance: TRAMETINIB
     Indication: LEFT VENTRICLE OUTFLOW TRACT OBSTRUCTION
     Dosage: 0.012 MG/KG, QD
     Route: 065

REACTIONS (6)
  - Mitral valve incompetence [Unknown]
  - Product use issue [Unknown]
  - Dry skin [Unknown]
  - Stomatitis [Unknown]
  - Alopecia [Unknown]
  - Product use in unapproved indication [Unknown]
